FAERS Safety Report 5330846-7 (Version None)
Quarter: 2007Q2

REPORT INFORMATION
  Report Type: 
  Country: None (occurrence: None)
  Receive Date: 20070522
  Receipt Date: 20070511
  Transmission Date: 20071010
  Serious: Yes (Other)
  Sender: FDA-Public Use
  Company Number: US-ELI_LILLY_AND_COMPANY-US200705003930

PATIENT
  Age: 51 Year
  Sex: Female

DRUGS (3)
  1. GEMZAR [Suspect]
     Dosage: 1350 MG, UNK
     Route: 042
     Dates: start: 20070327, end: 20070501
  2. TAXOTERE [Concomitant]
     Dosage: 50 MG, UNK
     Route: 042
     Dates: start: 20070327, end: 20070508
  3. ZOMETA [Concomitant]
     Dosage: 4 MG, UNK
     Route: 042
     Dates: start: 20070228

REACTIONS (1)
  - PLATELET COUNT INCREASED [None]
